FAERS Safety Report 8377959-3 (Version None)
Quarter: 2012Q2

REPORT INFORMATION
  Report Type: 
  Country: None (occurrence: None)
  Receive Date: 20120522
  Receipt Date: 20120514
  Transmission Date: 20120825
  Serious: Yes (Other)
  Sender: FDA-Public Use
  Company Number: US-UCBSA-057340

PATIENT
  Age: 29 Year
  Sex: Female

DRUGS (2)
  1. ZOLOFT [Suspect]
     Indication: INJURY
     Dates: end: 20120201
  2. CIMZIA [Suspect]
     Dosage: STRENGTH: 200 MG
     Route: 058
     Dates: start: 20111129, end: 20120211

REACTIONS (2)
  - LOSS OF CONSCIOUSNESS [None]
  - EYE MOVEMENT DISORDER [None]
